FAERS Safety Report 19230004 (Version 4)
Quarter: 2021Q2

REPORT INFORMATION
  Report Type: Report from Study
  Country: US (occurrence: US)
  Receive Date: 20210506
  Receipt Date: 20210617
  Transmission Date: 20210717
  Serious: Yes (Hospitalization)
  Sender: FDA-Public Use
  Company Number: US-BIOGEN-2021BI01006594

PATIENT
  Sex: Male

DRUGS (1)
  1. TYSABRI [Suspect]
     Active Substance: NATALIZUMAB
     Indication: MULTIPLE SCLEROSIS
     Route: 065
     Dates: start: 20150522

REACTIONS (5)
  - Kidney infection [Not Recovered/Not Resolved]
  - Drug ineffective [Unknown]
  - Pneumonia aspiration [Not Recovered/Not Resolved]
  - Vomiting [Unknown]
  - Decubitus ulcer [Not Recovered/Not Resolved]
